FAERS Safety Report 6635462-2 (Version None)
Quarter: 2010Q1

REPORT INFORMATION
  Report Type: 
  Country: None (occurrence: None)
  Receive Date: 20100315
  Receipt Date: 20090409
  Transmission Date: 20100710
  Serious: No
  Sender: FDA-Public Use
  Company Number: US-ABBOTT-09P-163-0567617-00

PATIENT
  Sex: Female
  Weight: 73.548 kg

DRUGS (1)
  1. DEPAKOTE [Suspect]
     Indication: DRUG USE FOR UNKNOWN INDICATION
     Route: 048
     Dates: start: 19990801, end: 20000901

REACTIONS (2)
  - CONSTIPATION [None]
  - VAGINAL HAEMORRHAGE [None]
